FAERS Safety Report 9641084 (Version 1)
Quarter: 2013Q4

REPORT INFORMATION
  Report Type: Report from Study
  Country: US (occurrence: US)
  Receive Date: 20131023
  Receipt Date: 20131023
  Transmission Date: 20140711
  Serious: No
  Sender: FDA-Public Use
  Company Number: US-ABBVIE-13P-163-1046467-00

PATIENT
  Sex: Female

DRUGS (3)
  1. LUPRON DEPOT [Suspect]
     Indication: ENDOMETRIOSIS
     Route: 030
     Dates: start: 201209
  2. LUPRON DEPOT [Suspect]
     Indication: PREMENSTRUAL DYSPHORIC DISORDER
  3. PROZAC [Concomitant]
     Indication: PRODUCT USED FOR UNKNOWN INDICATION

REACTIONS (3)
  - Breast tenderness [Not Recovered/Not Resolved]
  - Mood altered [Not Recovered/Not Resolved]
  - Unevaluable event [Not Recovered/Not Resolved]
